FAERS Safety Report 21687111 (Version 2)
Quarter: 2022Q4

REPORT INFORMATION
  Report Type: Report from Study
  Country: ES (occurrence: ES)
  Receive Date: 20221206
  Receipt Date: 20221223
  Transmission Date: 20230112
  Serious: Yes (Hospitalization, Other)
  Sender: FDA-Public Use
  Company Number: ES-TAKEDA-2022TUS091992

PATIENT
  Age: 5 Year
  Sex: Female

DRUGS (8)
  1. TEDUGLUTIDE [Suspect]
     Active Substance: TEDUGLUTIDE
     Indication: Short-bowel syndrome
     Dosage: 0.6 MILLIGRAM, QD
     Route: 042
     Dates: start: 20210625
  2. TEDUGLUTIDE [Suspect]
     Active Substance: TEDUGLUTIDE
     Indication: Short-bowel syndrome
     Dosage: 0.6 MILLIGRAM, QD
     Route: 042
     Dates: start: 20210625
  3. TEDUGLUTIDE [Suspect]
     Active Substance: TEDUGLUTIDE
     Indication: Short-bowel syndrome
     Dosage: 0.6 MILLIGRAM, QD
     Route: 042
     Dates: start: 20210625
  4. TEDUGLUTIDE [Suspect]
     Active Substance: TEDUGLUTIDE
     Indication: Short-bowel syndrome
     Dosage: 0.6 MILLIGRAM, QD
     Route: 042
     Dates: start: 20210625
  5. GENTAMICIN [Concomitant]
     Active Substance: GENTAMICIN
     Indication: Laparotomy
     Dosage: UNK
     Route: 065
     Dates: start: 20220916, end: 20220923
  6. METRONIDAZOLE [Concomitant]
     Active Substance: METRONIDAZOLE
     Indication: Laparotomy
     Dosage: UNK
     Route: 065
     Dates: start: 20220916, end: 20220923
  7. TEICOPLANIN [Concomitant]
     Active Substance: TEICOPLANIN
     Indication: Pyrexia
     Dosage: UNK
     Route: 065
     Dates: start: 20220923, end: 20220930
  8. PIPERACILLIN AND TAZOBACTAM [Concomitant]
     Active Substance: PIPERACILLIN SODIUM\TAZOBACTAM SODIUM
     Indication: Pyrexia
     Dosage: UNK
     Route: 065
     Dates: start: 20220923, end: 20220930

REACTIONS (1)
  - Postoperative wound infection [Recovered/Resolved]

NARRATIVE: CASE EVENT DATE: 20221107
